FAERS Safety Report 19587538 (Version 5)
Quarter: 2021Q3

REPORT INFORMATION
  Report Type: Report from Study
  Country: RU (occurrence: RU)
  Receive Date: 20210721
  Receipt Date: 20210917
  Transmission Date: 20211014
  Serious: Yes (Death, Life-Threatening, Hospitalization, Disabling, Other)
  Sender: FDA-Public Use
  Company Number: NVSC2021RU162917

PATIENT
  Age: 82 Year
  Sex: Female
  Weight: 74 kg

DRUGS (6)
  1. TORASEMIDE [Concomitant]
     Active Substance: TORSEMIDE
     Indication: PRODUCT USED FOR UNKNOWN INDICATION
     Dosage: 2.5 MG, QD (IN THE MORNING)
     Route: 048
     Dates: start: 2015
  2. XARELTO [Concomitant]
     Active Substance: RIVAROXABAN
     Indication: PRODUCT USED FOR UNKNOWN INDICATION
     Dosage: 15 MG, QD (IN THE MORNING)
     Route: 048
     Dates: start: 2015
  3. ROSUVASTATIN. [Concomitant]
     Active Substance: ROSUVASTATIN
     Indication: PRODUCT USED FOR UNKNOWN INDICATION
     Dosage: 10 MG, QD (IN THE EVENING)
     Route: 048
     Dates: start: 2015
  4. INC280 [Suspect]
     Active Substance: CAPMATINIB
     Indication: NON-SMALL CELL LUNG CANCER
     Dosage: 800 OT
     Route: 048
     Dates: start: 20210602, end: 20210610
  5. LOSARTAN. [Concomitant]
     Active Substance: LOSARTAN
     Indication: PRODUCT USED FOR UNKNOWN INDICATION
     Dosage: 12.5 MG, QD (IN THE EVENING)
     Route: 048
     Dates: start: 2015
  6. SPIRONOLACTONE. [Concomitant]
     Active Substance: SPIRONOLACTONE
     Indication: PRODUCT USED FOR UNKNOWN INDICATION
     Dosage: 25 MG, QD (IN THE MORNING)
     Route: 048
     Dates: start: 2015

REACTIONS (19)
  - Abdominal pain [Unknown]
  - Speech disorder [Unknown]
  - Small intestinal obstruction [Fatal]
  - Malignant neoplasm progression [Fatal]
  - Non-small cell lung cancer [Fatal]
  - Ischaemic cerebral infarction [Recovered/Resolved with Sequelae]
  - Hemianaesthesia [Unknown]
  - Nausea [Unknown]
  - Ascites [Unknown]
  - Dyspnoea [Unknown]
  - Anaemia [Unknown]
  - Constipation [Unknown]
  - Abdominal discomfort [Unknown]
  - Condition aggravated [Unknown]
  - Hemiparesis [Unknown]
  - Dysarthria [Unknown]
  - Asthenia [Unknown]
  - Vomiting [Unknown]
  - Multiple organ dysfunction syndrome [Fatal]

NARRATIVE: CASE EVENT DATE: 20210610
